FAERS Safety Report 5457906-4 (Version None)
Quarter: 2007Q3

REPORT INFORMATION
  Report Type: 
  Country: None (occurrence: None)
  Receive Date: 20070918
  Receipt Date: 20070906
  Transmission Date: 20080115
  Serious: Yes (Other)
  Sender: FDA-Public Use
  Company Number: US-PFIZER INC-2007076564

PATIENT
  Sex: Male

DRUGS (1)
  1. VIAGRA [Suspect]

REACTIONS (1)
  - OPTIC ISCHAEMIC NEUROPATHY [None]
